FAERS Safety Report 22143384 (Version 4)
Quarter: 2023Q2

REPORT INFORMATION
  Report Type: Report from Study
  Country: GR (occurrence: GR)
  Receive Date: 20230327
  Receipt Date: 20230403
  Transmission Date: 20230721
  Serious: Yes (Hospitalization)
  Sender: FDA-Public Use
  Company Number: GR-ABBVIE-4705146

PATIENT
  Age: 73 Year
  Sex: Male
  Weight: 90 kg

DRUGS (3)
  1. CARBIDOPA\LEVODOPA [Suspect]
     Active Substance: CARBIDOPA\LEVODOPA
     Indication: Parkinson^s disease
     Dosage: MORNING DOSE: 12.3 ML; CONTINUOUS RATE: 4.0 ML/H; EXTRA DOSE: 1.5 ML
     Route: 050
     Dates: start: 20230317
  2. CARBIDOPA\LEVODOPA [Suspect]
     Active Substance: CARBIDOPA\LEVODOPA
     Dosage: MORNING DOSE: 12.0 ML; CONTINUOUS RATE: 4.0 ML/H; EXTRA DOSE: 1.5 ML
     Route: 050
     Dates: end: 202303
  3. CARBIDOPA\LEVODOPA [Suspect]
     Active Substance: CARBIDOPA\LEVODOPA
     Dosage: MORNING DOSE: 12.3 ML; CONTINUOUS RATE: 4.0 ML/H; EXTRA DOSE: 1.5 ML
     Route: 050

REACTIONS (9)
  - Oxygen saturation decreased [Recovered/Resolved]
  - Stoma site discharge [Not Recovered/Not Resolved]
  - Hypophagia [Unknown]
  - Malaise [Unknown]
  - Abdominal pain [Recovered/Resolved]
  - Blood pressure abnormal [Recovered/Resolved]
  - Haematocrit decreased [Recovered/Resolved]
  - Orthostatic hypotension [Not Recovered/Not Resolved]
  - C-reactive protein increased [Recovered/Resolved]

NARRATIVE: CASE EVENT DATE: 20230301
